FAERS Safety Report 15210471 (Version 2)
Quarter: 2018Q4

REPORT INFORMATION
  Report Type: Report from Study
  Country: US (occurrence: US)
  Receive Date: 20180727
  Receipt Date: 20181226
  Transmission Date: 20190204
  Serious: Yes (Other)
  Sender: FDA-Public Use
  Company Number: US-BAUSCH-BL-2018-020335

PATIENT
  Sex: Female
  Weight: 72.64 kg

DRUGS (9)
  1. ABILIFY [Concomitant]
     Active Substance: ARIPIPRAZOLE
     Indication: PRODUCT USED FOR UNKNOWN INDICATION
     Route: 048
  2. INDERAL [Concomitant]
     Active Substance: PROPRANOLOL HYDROCHLORIDE
     Indication: PRODUCT USED FOR UNKNOWN INDICATION
  3. SYPRINE [Suspect]
     Active Substance: TRIENTINE HYDROCHLORIDE
     Indication: HEPATO-LENTICULAR DEGENERATION
     Dosage: SEVERAL YEARS AGO, 3 CAPSULES IN MORNING AND 2 CAPSULES IN EVENING
     Route: 048
     Dates: start: 2009
  4. ATIVAN [Concomitant]
     Active Substance: LORAZEPAM
     Indication: PRODUCT USED FOR UNKNOWN INDICATION
     Dosage: AS NEEDED
     Route: 048
  5. SYPRINE [Suspect]
     Active Substance: TRIENTINE HYDROCHLORIDE
     Dosage: USED FOR ONE YEAR, SOMETIME BETWEEN 2013 AND 2016
     Route: 048
  6. TRAZODONE [Concomitant]
     Active Substance: TRAZODONE HYDROCHLORIDE
     Indication: PRODUCT USED FOR UNKNOWN INDICATION
     Route: 048
  7. VIIBRYD [Concomitant]
     Active Substance: VILAZODONE HYDROCHLORIDE
     Indication: PRODUCT USED FOR UNKNOWN INDICATION
     Route: 048
  8. SYPRINE [Suspect]
     Active Substance: TRIENTINE HYDROCHLORIDE
     Dosage: RESTARTED, 3 CAPSULES IN MORNING AND 2 CAPSULES IN EVENING
     Route: 048
  9. GALZIN [Suspect]
     Active Substance: ZINC ACETATE
     Indication: PRODUCT USED FOR UNKNOWN INDICATION
     Route: 048

REACTIONS (18)
  - Nausea [Not Recovered/Not Resolved]
  - Cholecystectomy [Unknown]
  - Dizziness [Not Recovered/Not Resolved]
  - Post procedural bile leak [Unknown]
  - Autoimmune hepatitis [Not Recovered/Not Resolved]
  - Hypoglycaemia [Not Recovered/Not Resolved]
  - Syncope [Not Recovered/Not Resolved]
  - Loss of consciousness [Unknown]
  - Abdominal pain upper [Not Recovered/Not Resolved]
  - Treatment noncompliance [Recovered/Resolved]
  - Type 1 diabetes mellitus [Not Recovered/Not Resolved]
  - Seizure [Not Recovered/Not Resolved]
  - Gastric ulcer [Not Recovered/Not Resolved]
  - Vomiting [Not Recovered/Not Resolved]
  - Pancreatic disorder [Unknown]
  - Hepatitis [Unknown]
  - Abdominal discomfort [Not Recovered/Not Resolved]
  - Muscle spasms [Not Recovered/Not Resolved]

NARRATIVE: CASE EVENT DATE: 2009
